FAERS Safety Report 7306333-3 (Version None)
Quarter: 2011Q1

REPORT INFORMATION
  Report Type: 
  Country: None (occurrence: None)
  Receive Date: 20110119
  Receipt Date: 20100707
  Transmission Date: 20110831
  Serious: Yes (Other)
  Sender: FDA-Public Use
  Company Number: A-US2010-37901

PATIENT
  Age: 40 Year
  Sex: Female
  Weight: 95.7 kg

DRUGS (7)
  1. NEXIUM [Concomitant]
  2. PREDNISONE TAB [Concomitant]
  3. EVOXAC [Concomitant]
  4. LIPITOR [Concomitant]
  5. BACTRIM DS [Concomitant]
  6. TRACLEER [Suspect]
     Indication: PULMONARY ARTERIAL HYPERTENSION
     Dosage: 62.5 MG, BID, ORAL, 125 MG, BID, ORAL
     Route: 048
     Dates: start: 20080403, end: 20080701
  7. TRACLEER [Suspect]
     Indication: PULMONARY ARTERIAL HYPERTENSION
     Dosage: 62.5 MG, BID, ORAL, 125 MG, BID, ORAL
     Route: 048
     Dates: start: 20080702, end: 20100506

REACTIONS (10)
  - VOMITING [None]
  - ALANINE AMINOTRANSFERASE INCREASED [None]
  - PAIN IN JAW [None]
  - NAUSEA [None]
  - FATIGUE [None]
  - ASPARTATE AMINOTRANSFERASE INCREASED [None]
  - BLOOD ALKALINE PHOSPHATASE INCREASED [None]
  - LOCAL SWELLING [None]
  - NECK PAIN [None]
  - LIVER FUNCTION TEST ABNORMAL [None]
